FAERS Safety Report 8388030-9 (Version None)
Quarter: 2012Q2

REPORT INFORMATION
  Report Type: 
  Country: None (occurrence: None)
  Receive Date: 20120525
  Receipt Date: 20120516
  Transmission Date: 20120825
  Serious: Yes (Other)
  Sender: FDA-Public Use
  Company Number: FR-ELI_LILLY_AND_COMPANY-FR201205005430

PATIENT
  Sex: Male
  Weight: 69 kg

DRUGS (1)
  1. GEMZAR [Suspect]
     Indication: ADENOCARCINOMA PANCREAS
     Dosage: 1000 MG, INJECTION PER WEEK (3WEEKS/4)
     Route: 042
     Dates: start: 20111101, end: 20120312

REACTIONS (1)
  - HYPERTENSION [None]
